FAERS Safety Report 4986357-1 (Version None)
Quarter: 2006Q2

REPORT INFORMATION
  Report Type: 
  Country: None (occurrence: None)
  Receive Date: 20060428
  Receipt Date: 20060426
  Transmission Date: 20061013
  Serious: Yes (Other)
  Sender: FDA-Public Use
  Company Number: US-GLAXOSMITHKLINE-A0603578A

PATIENT
  Sex: Female

DRUGS (2)
  1. LOTRONEX [Suspect]
     Indication: IRRITABLE BOWEL SYNDROME
     Dosage: 1MG PER DAY
     Route: 048
     Dates: start: 20060401, end: 20060417
  2. GLYCOLAX [Concomitant]

REACTIONS (4)
  - ABDOMINAL DISTENSION [None]
  - CONFUSIONAL STATE [None]
  - DIZZINESS [None]
  - SYNCOPE [None]
